FAERS Safety Report 24706125 (Version 1)
Quarter: 2024Q4

REPORT INFORMATION
  Report Type: Spontaneous
  Country: US (occurrence: None)
  Receive Date: 20241205
  Receipt Date: 20241205
  Transmission Date: 20250115
  Serious: Yes (Hospitalization)
  Sender: Public
  Company Number: None

PATIENT
  Age: 14 Year
  Sex: Male

DRUGS (2)
  1. UDENYCA [Suspect]
     Active Substance: PEGFILGRASTIM-CBQV
     Indication: Bone cancer
     Dosage: FREQUENCY: INJECT 1 SYRINGE UNDER THE SKIN FOR 1 DOSE OF A 21 DAY CYCLE. INJECT 24 - 48 HOURS AFTE
     Route: 058
     Dates: start: 202410
  2. UDENYCA [Suspect]
     Active Substance: PEGFILGRASTIM-CBQV
     Indication: Chondrosarcoma

REACTIONS (2)
  - Full blood count decreased [None]
  - Rhinovirus infection [None]

NARRATIVE: CASE EVENT DATE: 20241111
